FAERS Safety Report 6732581-7 (Version None)
Quarter: 2010Q2

REPORT INFORMATION
  Report Type: 
  Country: None (occurrence: None)
  Receive Date: 20100519
  Receipt Date: 20100507
  Transmission Date: 20101027
  Serious: No
  Sender: FDA-Public Use
  Company Number: US-B.I. PHARMACEUTICALS,INC./RIDGEFIELD-2007-BP-05605BP

PATIENT
  Sex: Female

DRUGS (9)
  1. SPIRIVA [Suspect]
     Indication: CHRONIC OBSTRUCTIVE PULMONARY DISEASE
     Dosage: 18 MCG
     Route: 055
     Dates: start: 20050101
  2. ALBUTEROL [Suspect]
     Indication: INCREASED UPPER AIRWAY SECRETION
  3. HYDROCHLOROTHIAZIDE [Concomitant]
     Indication: DIURETIC THERAPY
  4. HYDROCHLOROTHIAZIDE [Concomitant]
     Indication: HYPERTENSION
  5. CALAN [Concomitant]
     Indication: HYPERTENSION
  6. ZOLOFT [Concomitant]
  7. ADVAIR DISKUS 100/50 [Concomitant]
     Indication: CHRONIC OBSTRUCTIVE PULMONARY DISEASE
     Dates: end: 20100401
  8. LORAZEPAM [Concomitant]
  9. FLONASE [Concomitant]
     Indication: HYPERSENSITIVITY

REACTIONS (11)
  - ASTHENIA [None]
  - BLOOD CHOLESTEROL INCREASED [None]
  - BRONCHITIS [None]
  - CORONARY ARTERY OCCLUSION [None]
  - DIABETES MELLITUS [None]
  - DRY MOUTH [None]
  - FATIGUE [None]
  - FEELING JITTERY [None]
  - INCREASED UPPER AIRWAY SECRETION [None]
  - NAUSEA [None]
  - UPPER RESPIRATORY TRACT INFECTION [None]
